FAERS Safety Report 15697224 (Version 2)
Quarter: 2019Q1

REPORT INFORMATION
  Report Type: Spontaneous
  Country: DE (occurrence: DE)
  Receive Date: 20181206
  Receipt Date: 20190214
  Transmission Date: 20190417
  Serious: Yes (Hospitalization, Other)
  Sender: FDA-Public Use
  Company Number: DE-BIOGEN-2018BI00668088

PATIENT
  Age: 32 Year
  Sex: Male

DRUGS (1)
  1. TYSABRI [Suspect]
     Active Substance: NATALIZUMAB
     Indication: RELAPSING-REMITTING MULTIPLE SCLEROSIS
     Dosage: DAILY DOSE: 1 DF DOSAGE FORM EVERY 4 WEEKS
     Route: 042
     Dates: start: 2013, end: 201807

REACTIONS (7)
  - Alveolitis [Not Recovered/Not Resolved]
  - Nasopharyngitis [Unknown]
  - Pulmonary embolism [Recovered/Resolved]
  - Influenza [Unknown]
  - Fatigue [Unknown]
  - Influenza virus test positive [Unknown]
  - Dyspnoea [Unknown]

NARRATIVE: CASE EVENT DATE: 201802
